FAERS Safety Report 13926362 (Version 1)
Quarter: 2017Q3

REPORT INFORMATION
  Report Type: Spontaneous
  Country: CA (occurrence: CA)
  Receive Date: 20170831
  Receipt Date: 20170831
  Transmission Date: 20171127
  Serious: Yes (Hospitalization)
  Sender: FDA-Public Use
  Company Number: CA-PFIZER INC-2017371486

PATIENT
  Age: 39 Year
  Sex: Male

DRUGS (8)
  1. HYDROXYZINE [Concomitant]
     Active Substance: HYDROXYZINE HYDROCHLORIDE
     Dosage: 50 MG, 1X/DAY (EVERY NIGHT)
     Route: 048
  2. TOPIRAMATE. [Concomitant]
     Active Substance: TOPIRAMATE
     Dosage: UNK (50/25/50 MG EVERY MORNING/NOON/EVENING)
     Route: 048
  3. BUSPIRONE [Concomitant]
     Active Substance: BUSPIRONE HYDROCHLORIDE
     Dosage: 10 MG, 2X/DAY
     Route: 048
  4. PHENYTOIN. [Suspect]
     Active Substance: PHENYTOIN
     Indication: EPILEPSY
     Dosage: UNK (75/100 MG EVERY MORNING/EVENING)
     Route: 048
  5. LEVOTHYROXINE. [Concomitant]
     Active Substance: LEVOTHYROXINE
     Indication: HYPOTHYROIDISM
     Dosage: 0.100 MG, DAILY
     Route: 048
  6. PHENYTOIN. [Suspect]
     Active Substance: PHENYTOIN
     Dosage: UNK (DOSE HAD BEEN REDUCED TWICE IN THE PAST TWO MONTHS)
  7. CICLOPIROX. [Concomitant]
     Active Substance: CICLOPIROX
     Dosage: UNK (TWICE DAILY)
     Route: 061
  8. LORAZEPAM. [Concomitant]
     Active Substance: LORAZEPAM
     Dosage: 1 MG, DAILY (AS NEEDED)
     Route: 048

REACTIONS (2)
  - Toxicity to various agents [Unknown]
  - Endocrine disorder [Unknown]
